FAERS Safety Report 7869231 (Version 4)
Quarter: 2014Q1

REPORT INFORMATION
  Report Type: Spontaneous
  Country: US (occurrence: US)
  Receive Date: 20110324
  Receipt Date: 20140130
  Transmission Date: 20141002
  Serious: Yes (Hospitalization)
  Sender: FDA-Public Use
  Company Number: US-BAYER-2011-023878

PATIENT
  Age: 21 Year
  Sex: Female
  Weight: 98 kg

DRUGS (9)
  1. YAZ [Suspect]
     Dosage: UNK
     Route: 048
     Dates: start: 200905, end: 201001
  2. CONCERTA [Concomitant]
     Indication: ATTENTION DEFICIT/HYPERACTIVITY DISORDER
     Dosage: UNK
     Dates: start: 200909
  3. ACETAMINOPHEN W/CODEINE [Concomitant]
  4. PRILOSEC [Concomitant]
  5. ALBUTEROL [Concomitant]
     Indication: ASTHMA
  6. PRO-AIR [Concomitant]
     Dosage: UNK
     Dates: start: 20101124
  7. CIPROFLOXACIN [Concomitant]
     Dosage: 500 MG, UNK
  8. PHENAZOPYRIDINE [Concomitant]
     Dosage: 200 MG, UNK
  9. ALEVE [Concomitant]
     Dosage: 2 TAB

REACTIONS (4)
  - Cholecystitis chronic [None]
  - Gallbladder disorder [None]
  - Pain [None]
  - Injury [None]
